FAERS Safety Report 10587243 (Version 2)
Quarter: 2014Q4

REPORT INFORMATION
  Report Type: Spontaneous
  Country: US (occurrence: US)
  Receive Date: 20141117
  Receipt Date: 20141117
  Transmission Date: 20150529
  Serious: No
  Sender: FDA-Public Use
  Company Number: US-ELI_LILLY_AND_COMPANY-US201405006963

PATIENT
  Age: 67 Year
  Sex: Female
  Weight: 72.11 kg

DRUGS (5)
  1. METFORMIN [Concomitant]
     Active Substance: METFORMIN HYDROCHLORIDE
     Dosage: 1000 DF, BID
     Route: 065
  2. HUMALOG [Suspect]
     Active Substance: INSULIN LISPRO
     Indication: TYPE 1 DIABETES MELLITUS
     Dosage: 14 U, TID
     Route: 058
     Dates: start: 20130626
  3. THYROXINE [Concomitant]
     Active Substance: LEVOTHYROXINE
     Indication: THYROID CANCER
     Route: 065
  4. HUMALOG [Suspect]
     Active Substance: INSULIN LISPRO
     Dosage: UNK, QID
     Route: 065
     Dates: start: 2013
  5. LEVEMIR [Concomitant]
     Active Substance: INSULIN DETEMIR
     Dosage: UNK, EACH EVENING
     Route: 065

REACTIONS (8)
  - Blood glucose fluctuation [Unknown]
  - Feeling hot [Unknown]
  - Paraesthesia [Unknown]
  - Vertigo [Not Recovered/Not Resolved]
  - Glycosylated haemoglobin increased [Unknown]
  - Drug effect delayed [Unknown]
  - Insulin resistance [Unknown]
  - Blood glucose increased [Unknown]

NARRATIVE: CASE EVENT DATE: 20140626
